FAERS Safety Report 20976229 (Version 1)
Quarter: 2022Q2

REPORT INFORMATION
  Report Type: Spontaneous
  Country: US (occurrence: US)
  Receive Date: 20220617
  Receipt Date: 20220617
  Transmission Date: 20220720
  Serious: No
  Sender: FDA-Public Use
  Company Number: US-PFIZER INC-PV202200003705

PATIENT
  Age: 64 Year
  Sex: Male
  Weight: 118.4 kg

DRUGS (1)
  1. SPIRONOLACTONE [Suspect]
     Active Substance: SPIRONOLACTONE
     Indication: Hypokalaemia
     Dosage: 25 MG
     Dates: start: 20220408

REACTIONS (1)
  - Pruritus [Unknown]
